FAERS Safety Report 5796834-1 (Version None)
Quarter: 2008Q3

REPORT INFORMATION
  Report Type: 
  Country: None (occurrence: None)
  Receive Date: 20080701
  Receipt Date: 20070209
  Transmission Date: 20090109
  Serious: Yes (Hospitalization)
  Sender: FDA-Public Use
  Company Number: CA-AVENTIS-200711154GDDC

PATIENT
  Age: 67 Year
  Sex: Male

DRUGS (9)
  1. INSULIN GLARGINE [Suspect]
     Indication: DIABETES MELLITUS
     Route: 058
     Dates: start: 20041015, end: 20070206
  2. OPTIPEN (INSULIN PUMP) [Suspect]
     Indication: DIABETES MELLITUS
  3. PLACEBO [Suspect]
     Dosage: DOSE: 1 CAP
     Route: 048
     Dates: start: 20041015, end: 20070206
  4. ALTACE [Concomitant]
     Dosage: DOSE QUANTITY: 10
     Dates: start: 20020101
  5. NOVASEN [Concomitant]
     Dosage: DOSE QUANTITY: 325
     Dates: start: 19910101
  6. SYNTHROID [Concomitant]
     Dosage: DOSE QUANTITY: 1
     Dates: start: 19910101
  7. CRESTOR [Concomitant]
     Dosage: DOSE QUANTITY: 40
     Dates: start: 20020101
  8. NORVASC [Concomitant]
     Dosage: DOSE QUANTITY: 5
     Dates: start: 20061001
  9. XATRAL                             /00975301/ [Concomitant]
     Dosage: DOSE QUANTITY: 10

REACTIONS (1)
  - ABNORMAL BEHAVIOUR [None]
